FAERS Safety Report 25771875 (Version 2)
Quarter: 2025Q3

REPORT INFORMATION
  Report Type: Spontaneous
  Country: US (occurrence: US)
  Receive Date: 20250908
  Receipt Date: 20250918
  Transmission Date: 20251020
  Serious: Yes (Hospitalization)
  Sender: TEVA
  Company Number: US-TEVA-VS-3368649

PATIENT
  Age: 63 Year
  Sex: Female

DRUGS (1)
  1. METHOTREXATE [Suspect]
     Active Substance: METHOTREXATE
     Indication: Psoriasis
     Dosage: RECEIVED TOTAL 20MG OF METHOTREXATE
     Route: 048

REACTIONS (3)
  - Epidermal necrosis [Recovered/Resolved]
  - Skin infection [Recovered/Resolved]
  - Pancytopenia [Recovered/Resolved]
